FAERS Safety Report 21736119 (Version 1)
Quarter: 2022Q4

REPORT INFORMATION
  Report Type: Spontaneous
  Country: US (occurrence: US)
  Receive Date: 20221215
  Receipt Date: 20221215
  Transmission Date: 20230112
  Serious: No
  Sender: FDA-Public Use
  Company Number: US-NOVOPROD-968123

PATIENT
  Sex: Female

DRUGS (1)
  1. LEVEMIR [Suspect]
     Active Substance: INSULIN DETEMIR
     Indication: Product used for unknown indication
     Dosage: 18 UNITS
     Route: 058
     Dates: start: 1995

REACTIONS (2)
  - Dysstasia [Not Recovered/Not Resolved]
  - Glycosylated haemoglobin increased [Unknown]
